FAERS Safety Report 8245567-0 (Version None)
Quarter: 2012Q1

REPORT INFORMATION
  Report Type: 
  Country: None (occurrence: None)
  Receive Date: 20120329
  Receipt Date: 20110105
  Transmission Date: 20120608
  Serious: Yes (Hospitalization, Other)
  Sender: FDA-Public Use
  Company Number: PHHY2010AU86008

PATIENT
  Sex: Male

DRUGS (1)
  1. EXELON [Suspect]
     Indication: DEMENTIA ALZHEIMER'S TYPE
     Dosage: UNK
     Route: 062
     Dates: start: 20101118, end: 20110105

REACTIONS (5)
  - APPARENT DEATH [None]
  - INFECTION [None]
  - NAUSEA [None]
  - OESOPHAGEAL CANDIDIASIS [None]
  - VOMITING [None]
